FAERS Safety Report 20320198 (Version 1)
Quarter: 2022Q1

REPORT INFORMATION
  Report Type: Spontaneous
  Country: US (occurrence: US)
  Receive Date: 20220111
  Receipt Date: 20220111
  Transmission Date: 20220424
  Serious: Yes (Hospitalization, Other)
  Sender: FDA-Public Use
  Company Number: US-ALKEM LABORATORIES LIMITED-US-ALKEM-2021-08451

PATIENT
  Age: 80 Year
  Sex: Female

DRUGS (1)
  1. PREGABALIN [Suspect]
     Active Substance: PREGABALIN
     Indication: Neuralgia
     Dosage: 125 MILLIGRAM, TID
     Route: 065

REACTIONS (8)
  - Haemodynamic instability [Unknown]
  - Decreased appetite [Unknown]
  - Delirium [Unknown]
  - Nausea [Unknown]
  - Headache [Unknown]
  - Balance disorder [Unknown]
  - Ataxia [Unknown]
  - Drug withdrawal syndrome [Unknown]
